FAERS Safety Report 7502596-X (Version None)
Quarter: 2011Q2

REPORT INFORMATION
  Report Type: 
  Country: None (occurrence: None)
  Receive Date: 20110517
  Receipt Date: 20110510
  Transmission Date: 20111010
  Serious: Yes (Hospitalization, Other)
  Sender: FDA-Public Use
  Company Number: CIP11000505

PATIENT
  Age: 78 Year
  Sex: Female

DRUGS (25)
  1. TRIAMTERENE AND HYDROCHLOROTHIAZIDE (HYDROCHLOROTHIAZIDE, TRIAMTERENE) [Concomitant]
  2. DETROL LA (TOLTERODIINE L-TARTRATE) [Concomitant]
  3. TYLENOL /00020001/ (PARACETAMOL) [Concomitant]
  4. ZANTAC [Concomitant]
  5. ACTONEL [Suspect]
     Dosage: 35 MG ONCE WEEKLY, ORAL
     Route: 048
     Dates: start: 20070301, end: 20090101
  6. SULFAMETHOXAZOLE AND TRIMETHOPRIM (SULFAMETHOXAZOLE, TRIMETHOPRIM) [Concomitant]
  7. LEVOXYL [Concomitant]
  8. PRILOSEC [Concomitant]
  9. FORTEO [Concomitant]
  10. FISH OIL (FISH OIL) [Concomitant]
  11. FOSAMAX [Suspect]
     Dosage: 70 MG ONCE WEEKLY, ORAL ; 70 MG ONCE A WEEK, ORAL
     Route: 048
     Dates: start: 20020107, end: 20050101
  12. FOSAMAX [Suspect]
     Dosage: 70 MG ONCE WEEKLY, ORAL ; 70 MG ONCE A WEEK, ORAL
     Route: 048
     Dates: start: 20091028, end: 20100318
  13. VITAMINS NOS (VITAMINS NOS) [Concomitant]
  14. NIACIN [Concomitant]
  15. ACTONEL WITH CALCIUM (COPACKAGED) [Suspect]
     Dosage: 1 TABLET, REGIMEN, ORAL
     Route: 048
     Dates: start: 20070315, end: 20081015
  16. ALREX /01388302/ (LOTEPREDNOL ETABONATE) [Concomitant]
  17. MELOXICAM [Concomitant]
  18. ASPIRIN [Concomitant]
  19. CADUET [Concomitant]
  20. SIMVASTATIN [Concomitant]
  21. PLENDIL [Concomitant]
  22. NYSTATIN [Concomitant]
  23. FEXOFENADINE HCL [Concomitant]
  24. POTASSIUM CHLORIDE [Concomitant]
  25. CALCIUM +VIT D (CALCIUM, COLECALCIFEROL) [Concomitant]

REACTIONS (17)
  - PAIN IN EXTREMITY [None]
  - FRACTURE DISPLACEMENT [None]
  - ARTHRALGIA [None]
  - EXOSTOSIS [None]
  - INJURY [None]
  - CYSTOCELE REPAIR [None]
  - FEMUR FRACTURE [None]
  - GAIT DISTURBANCE [None]
  - MUSCLE ATROPHY [None]
  - INFECTION [None]
  - NEOPLASM [None]
  - FALL [None]
  - BONE FORMATION INCREASED [None]
  - TENDERNESS [None]
  - PATHOLOGICAL FRACTURE [None]
  - NO THERAPEUTIC RESPONSE [None]
  - STRESS FRACTURE [None]
